FAERS Safety Report 24247131 (Version 2)
Quarter: 2025Q2

REPORT INFORMATION
  Report Type: Spontaneous
  Country: CA (occurrence: CA)
  Receive Date: 20240826
  Receipt Date: 20250502
  Transmission Date: 20250716
  Serious: Yes (Other)
  Sender: AUROBINDO
  Company Number: CA-AUROBINDO-AUR-APL-2024-042265

PATIENT
  Age: 45 Year
  Sex: Female

DRUGS (2)
  1. MONTELUKAST [Suspect]
     Active Substance: MONTELUKAST
     Indication: Asthma
     Dosage: 1 DOSAGE FORM, ONCE A DAY
     Route: 048
  2. MONTELUKAST [Suspect]
     Active Substance: MONTELUKAST
     Indication: Multiple allergies

REACTIONS (4)
  - Anxiety [Recovering/Resolving]
  - Nausea [Recovering/Resolving]
  - Suicidal ideation [Recovering/Resolving]
  - Withdrawal syndrome [Recovering/Resolving]
